FAERS Safety Report 8332858-8 (Version None)
Quarter: 2012Q1

REPORT INFORMATION
  Report Type: 
  Country: None (occurrence: None)
  Receive Date: 20120327
  Receipt Date: 20110421
  Transmission Date: 20120608
  Serious: Yes (Other)
  Sender: FDA-Public Use
  Company Number: PHEH2009US13436

PATIENT
  Sex: Male

DRUGS (8)
  1. LIPITOR [Concomitant]
  2. NORVASC [Concomitant]
  3. PRILOSEC [Concomitant]
  4. CELEBREX [Concomitant]
  5. LORAZEPAM [Concomitant]
  6. OXYCODONE HCL [Concomitant]
  7. GLEEVEC [Suspect]
     Dosage: 400 MG, BID; 300 MG. BID; 1-- ,G. TID, ORAL
     Dates: start: 20050101
  8. NEXIUM [Concomitant]

REACTIONS (7)
  - BACK PAIN [None]
  - NAUSEA [None]
  - ABDOMINAL PAIN UPPER [None]
  - FLUID RETENTION [None]
  - DIARRHOEA [None]
  - FATIGUE [None]
  - ANAEMIA [None]
